FAERS Safety Report 10193797 (Version 1)
Quarter: 2014Q2

REPORT INFORMATION
  Report Type: Spontaneous
  Country: US (occurrence: US)
  Receive Date: 20140524
  Receipt Date: 20140524
  Transmission Date: 20141212
  Serious: No
  Sender: FDA-Public Use
  Company Number: US-SANOFI-AVENTIS-2013SA044335

PATIENT
  Age: 51 Year
  Sex: Male
  Weight: 90 kg

DRUGS (8)
  1. LANTUS [Suspect]
     Indication: TYPE 1 DIABETES MELLITUS
     Dosage: DOSE:40 UNIT(S)
     Route: 051
     Dates: start: 20130325
  2. LANTUS [Suspect]
     Indication: TYPE 1 DIABETES MELLITUS
     Dosage: DOSE:40 UNIT(S)
     Route: 051
     Dates: start: 20130325
  3. NOVOLOG [Suspect]
  4. ASPIRIN [Concomitant]
     Indication: PAIN
     Dates: start: 20100501
  5. ASPIRIN [Concomitant]
     Indication: ANTICOAGULANT THERAPY
     Dates: start: 20100501
  6. CARBIDOPA/LEVODOPA [Concomitant]
     Indication: PARKINSON^S DISEASE
     Dates: start: 20000601
  7. PRAMIPEXOLE [Concomitant]
     Indication: PARKINSON^S DISEASE
     Dates: start: 20000601
  8. ATENOLOL [Concomitant]
     Indication: HYPERTENSION
     Dates: start: 20030501

REACTIONS (5)
  - Pain in extremity [Not Recovered/Not Resolved]
  - Gait disturbance [Not Recovered/Not Resolved]
  - Vision blurred [Unknown]
  - Musculoskeletal stiffness [Not Recovered/Not Resolved]
  - Gait disturbance [Not Recovered/Not Resolved]
